FAERS Safety Report 9246425 (Version 2)
Quarter: 2013Q2

REPORT INFORMATION
  Report Type: Spontaneous
  Country: ES (occurrence: ES)
  Receive Date: 20130422
  Receipt Date: 20130510
  Transmission Date: 20140414
  Serious: Yes (Other)
  Sender: FDA-Public Use
  Company Number: PHHY2013ES037328

PATIENT
  Age: 64 Year
  Sex: Male

DRUGS (2)
  1. ROPINIROLE SANDOZ [Suspect]
     Indication: PARKINSON^S DISEASE
     Dosage: 2 DF, DAILY
     Route: 048
     Dates: start: 2012, end: 20130506
  2. AZILECT [Concomitant]
     Indication: PARKINSON^S DISEASE

REACTIONS (2)
  - Nightmare [Recovered/Resolved]
  - Drug ineffective [Recovered/Resolved]
